FAERS Safety Report 25367472 (Version 1)
Quarter: 2025Q2

REPORT INFORMATION
  Report Type: Spontaneous
  Country: MX (occurrence: MX)
  Receive Date: 20250528
  Receipt Date: 20250528
  Transmission Date: 20250716
  Serious: Yes (Other)
  Sender: STRIDES
  Company Number: None

PATIENT
  Age: 43 Year
  Sex: Female

DRUGS (3)
  1. IBUPROFEN [Suspect]
     Active Substance: IBUPROFEN
     Indication: Asthenia
     Route: 065
  2. IBUPROFEN [Suspect]
     Active Substance: IBUPROFEN
     Indication: Asthenia
  3. IBUPROFEN [Suspect]
     Active Substance: IBUPROFEN
     Indication: Pyrexia

REACTIONS (10)
  - Coagulopathy [Unknown]
  - Mixed liver injury [Not Recovered/Not Resolved]
  - Hepatic encephalopathy [Unknown]
  - Acute hepatic failure [Not Recovered/Not Resolved]
  - Drug-induced liver injury [Unknown]
  - Hepatitis acute [Unknown]
  - Upper gastrointestinal haemorrhage [Unknown]
  - Self-medication [Unknown]
  - Off label use [Unknown]
  - Intentional product misuse [Unknown]
